FAERS Safety Report 21678583 (Version 3)
Quarter: 2022Q4

REPORT INFORMATION
  Report Type: Spontaneous
  Country: EG (occurrence: EG)
  Receive Date: 20221203
  Receipt Date: 20221230
  Transmission Date: 20230112
  Serious: Yes (Life-Threatening, Other)
  Sender: FDA-Public Use
  Company Number: EG-NOVOPROD-985112

PATIENT
  Age: 74 Year
  Sex: Male
  Weight: 120 kg

DRUGS (13)
  1. GAMAX [BORAGO OFFICINALIS] [Concomitant]
     Dosage: UNK(STARTED FROM 1 YEAR AGO)
  2. GAMAX [BORAGO OFFICINALIS] [Concomitant]
     Indication: Immunodeficiency
     Dosage: UNK (USED WHEN NECESSARY)
     Dates: end: 202112
  3. VITAMIN B12 [Concomitant]
     Active Substance: CYANOCOBALAMIN
     Indication: Diabetic neuropathy
     Dosage: EVERY 3 DAYS (DOSAGE NOT REPORTED)
     Route: 030
  4. POTASSIUM [Concomitant]
     Active Substance: POTASSIUM
     Indication: Prophylaxis
     Dosage: 1 TAB IF NEEDED
     Route: 048
  5. MARCAL [Concomitant]
     Indication: Mineral supplementation
     Dosage: 1 TABLET AFTER DINNER
     Route: 048
     Dates: start: 2020
  6. GOSERELIN ACETATE [Concomitant]
     Active Substance: GOSERELIN ACETATE
     Indication: Neoplasm
     Dosage: DOSE OF 1 SYRINGE EVERY 2 MONTHS
  7. HYDROCHLOROTHIAZIDE\IRBESARTAN [Concomitant]
     Active Substance: HYDROCHLOROTHIAZIDE\IRBESARTAN
     Indication: Hypertension
     Dosage: 1 TAB BEFORE BREAKFAST
     Route: 048
     Dates: start: 2019
  8. LASIX [Concomitant]
     Active Substance: FUROSEMIDE
     Indication: Diuretic therapy
     Dosage: 1 TAB
     Route: 048
  9. SELENIUM [Concomitant]
     Active Substance: SELENIUM
     Indication: Prophylaxis
     Dosage: 1 TAB BEFORE BREAKFAST
     Route: 048
  10. TRAMADOL [Concomitant]
     Active Substance: TRAMADOL
     Indication: Analgesic therapy
     Dosage: 1 TAB IF NEEDED
     Route: 048
  11. NOVORAPID [Suspect]
     Active Substance: INSULIN ASPART
     Indication: Type 1 diabetes mellitus
     Dosage: 15 U
     Route: 058
     Dates: start: 2019
  12. NOVORAPID [Suspect]
     Active Substance: INSULIN ASPART
     Dosage: 20 U BEFORE MEALS, AND 15 U BEFORE SLEEPING WHEN NECESSARY)
     Route: 058
  13. CIDOPHAGE [Concomitant]
     Indication: Type 1 diabetes mellitus
     Dosage: 1 TAB BEFORE BED
     Route: 048

REACTIONS (2)
  - Prostate cancer metastatic [Not Recovered/Not Resolved]
  - Mitral valve prolapse [Recovering/Resolving]

NARRATIVE: CASE EVENT DATE: 20200101
